FAERS Safety Report 8020894-0 (Version None)
Quarter: 2011Q4

REPORT INFORMATION
  Report Type: 
  Country: None (occurrence: None)
  Receive Date: 20111228
  Receipt Date: 20111220
  Transmission Date: 20120403
  Serious: Yes (Other)
  Sender: FDA-Public Use
  Company Number: AUR-APL-2011-06241

PATIENT
  Age: 67 Year
  Sex: Female

DRUGS (4)
  1. CEFTRIAXONE [Suspect]
     Indication: URINARY TRACT INFECTION
     Dosage: 1 GM, INTRAMUSCULAR
     Route: 030
  2. PHENAZOPYRIDINE (PHENAZOPYRIDINE) [Concomitant]
  3. CEFUROXIME [Concomitant]
  4. WARFARIN SODIUM [Suspect]
     Indication: PRODUCT USED FOR UNKNOWN INDICATION

REACTIONS (1)
  - INTERNATIONAL NORMALISED RATIO INCREASED [None]
